FAERS Safety Report 9051511 (Version 3)
Quarter: 2013Q1

REPORT INFORMATION
  Report Type: Spontaneous
  Country: CA (occurrence: CA)
  Receive Date: 20130206
  Receipt Date: 20130227
  Transmission Date: 20140127
  Serious: Yes (Other)
  Sender: FDA-Public Use
  Company Number: CA-AMGEN-CANSP2013007046

PATIENT
  Age: 52 Year
  Sex: Female
  Weight: 110 kg

DRUGS (12)
  1. NEULASTA [Suspect]
     Indication: PRODUCT USED FOR UNKNOWN INDICATION
     Dosage: 6 MG, Q2WK
     Route: 058
     Dates: start: 20121205
  2. ADRIAMYCIN                         /00330901/ [Concomitant]
     Indication: BREAST CANCER
     Dosage: 130 MG, Q2WK
     Route: 042
     Dates: start: 20121204
  3. ADRIAMYCIN                         /00330901/ [Concomitant]
     Dosage: 130 MG, Q2WK
     Dates: start: 20130117
  4. CYCLOPHOSPHAMIDE [Concomitant]
     Indication: BREAST CANCER
     Dosage: 1300 MG, Q2WK
     Route: 042
     Dates: start: 20121204
  5. CYCLOPHOSPHAMIDE [Concomitant]
     Dosage: 1300 MG, Q2WK
     Route: 042
     Dates: start: 20130117
  6. TAXOL [Concomitant]
     Indication: BREAST CANCER
     Dosage: UNK
  7. DECADRON                           /00016001/ [Concomitant]
     Indication: NAUSEA
     Dosage: 10 MG, BID PRE CHEMO X 3 DAYS
     Route: 048
     Dates: start: 20121204
  8. DECADRON                           /00016001/ [Concomitant]
     Dosage: 4 MG, BID PRE CHEMO X 3 DAYS
     Route: 048
  9. ONDANSETRON [Concomitant]
     Indication: NAUSEA
     Dosage: 8 MG, BID X 3 DAYS PRE CHEMO
     Route: 048
  10. MICARDIS [Concomitant]
     Dosage: UNK
  11. ALPRAZOLAM [Concomitant]
     Dosage: UNK
  12. STEMETIL                           /00013301/ [Concomitant]
     Dosage: 10 MG, AS NECESSARY PRE CHEMO
     Route: 048

REACTIONS (4)
  - Thrombosis in device [Not Recovered/Not Resolved]
  - Subclavian vein thrombosis [Not Recovered/Not Resolved]
  - Local swelling [Not Recovered/Not Resolved]
  - Pain in extremity [Not Recovered/Not Resolved]
